FAERS Safety Report 9382202 (Version 2)
Quarter: 2013Q3

REPORT INFORMATION
  Report Type: Spontaneous
  Country: AU (occurrence: AU)
  Receive Date: 20130703
  Receipt Date: 20130711
  Transmission Date: 20140515
  Serious: Yes (Disabling, Other)
  Sender: FDA-Public Use
  Company Number: AU-AMGEN-AUSSP2013030213

PATIENT
  Age: 85 Year
  Sex: Male

DRUGS (1)
  1. XGEVA [Suspect]
     Indication: PROSTATE CANCER METASTATIC
     Dosage: 120 MG, QMO
     Route: 058
     Dates: start: 20121129

REACTIONS (10)
  - Pancreatic carcinoma metastatic [Unknown]
  - Blindness [Unknown]
  - Malignant neoplasm progression [Not Recovered/Not Resolved]
  - Malignant neoplasm progression [Not Recovered/Not Resolved]
  - Retinal detachment [Not Recovered/Not Resolved]
  - Fall [Recovered/Resolved with Sequelae]
  - Eye injury [Recovered/Resolved with Sequelae]
  - Injury [Not Recovered/Not Resolved]
  - Asthenia [Unknown]
  - Feeling abnormal [Unknown]
